FAERS Safety Report 15193153 (Version 2)
Quarter: 2018Q3

REPORT INFORMATION
  Report Type: Other
  Country: RO (occurrence: RO)
  Receive Date: 20180725
  Receipt Date: 20180726
  Transmission Date: 20181010
  Serious: Yes (Other)
  Sender: FDA-Public Use
  Company Number: RO-MERCK KGAA-2052698

PATIENT
  Age: 43 Year
  Sex: Female

DRUGS (11)
  1. ASPIRIN. [Suspect]
     Active Substance: ASPIRIN
  2. DOXORUBICIN [Suspect]
     Active Substance: DOXORUBICIN
  3. FUROSEMIDE. [Suspect]
     Active Substance: FUROSEMIDE
  4. ATORVASTATIN ORION [Suspect]
     Active Substance: ATORVASTATIN CALCIUM
  5. PERINDOPRIL [Suspect]
     Active Substance: PERINDOPRIL
  6. CANDESARTAN. [Suspect]
     Active Substance: CANDESARTAN
  7. NOVOTHYROX [Suspect]
     Active Substance: LEVOTHYROXINE SODIUM
     Indication: PRODUCT USED FOR UNKNOWN INDICATION
  8. DACARBAZINE. [Suspect]
     Active Substance: DACARBAZINE
  9. SPIRONOLACTONE. [Suspect]
     Active Substance: SPIRONOLACTONE
  10. BISOPROLOL [Suspect]
     Active Substance: BISOPROLOL
  11. VINBLASTINE [Suspect]
     Active Substance: VINBLASTINE

REACTIONS (6)
  - Cardiovascular disorder [Unknown]
  - Cough [Unknown]
  - Pericarditis constrictive [Unknown]
  - Dyspnoea [Unknown]
  - Pulmonary toxicity [Unknown]
  - Fatigue [Unknown]

NARRATIVE: CASE EVENT DATE: 201711
